FAERS Safety Report 19244307 (Version 2)
Quarter: 2021Q4

REPORT INFORMATION
  Report Type: Spontaneous
  Country: FR (occurrence: FR)
  Receive Date: 20210512
  Receipt Date: 20211223
  Transmission Date: 20220303
  Serious: Yes (Hospitalization, Other)
  Sender: FDA-Public Use
  Company Number: FR-AMGEN-FRASP2021068560

PATIENT
  Age: 33 Year
  Sex: Female

DRUGS (10)
  1. ARANESP [Suspect]
     Active Substance: DARBEPOETIN ALFA
     Indication: Anaemia
     Dosage: 20 MICROGRAM, QWK
     Route: 065
  2. ARANESP [Suspect]
     Active Substance: DARBEPOETIN ALFA
     Indication: Haemolytic anaemia
     Dosage: 160 MICROGRAM, QWK
     Route: 065
  3. CLAIRYG [Concomitant]
     Active Substance: HUMAN IMMUNOGLOBULIN G
     Indication: Prophylaxis of abortion
     Dosage: 1 GRAM PER KILOGRAM
     Route: 042
  4. CLAIRYG [Concomitant]
     Active Substance: HUMAN IMMUNOGLOBULIN G
     Dosage: 2 UNK
     Route: 042
  5. HUMAN PLASMA [Concomitant]
     Active Substance: HUMAN PLASMA
     Dosage: 60 MILLILITRE PER KILOGRAM, 5/WEEK
  6. HUMAN PLASMA [Concomitant]
     Active Substance: HUMAN PLASMA
     Dosage: 60 MILLILITRE PER KILOGRAM, 2/WEEK
  7. HUMAN PLASMA [Concomitant]
     Active Substance: HUMAN PLASMA
     Dosage: 60 MILLILITRE PER KILOGRAM, QWK
  8. IRON [Concomitant]
     Active Substance: IRON
     Indication: Anaemia
     Dosage: UNK
     Route: 042
  9. POTASSIUM [Concomitant]
     Active Substance: POTASSIUM
     Indication: Hypokalaemia
     Dosage: UNK
  10. FOLIC ACID [Concomitant]
     Active Substance: FOLIC ACID
     Indication: Haemolytic anaemia
     Dosage: 5 MILLIGRAM, QD
     Route: 065

REACTIONS (3)
  - Procedural haemorrhage [Unknown]
  - Off label use [Unknown]
  - Maternal exposure during pregnancy [Unknown]
